FAERS Safety Report 6183930-2 (Version None)
Quarter: 2009Q2

REPORT INFORMATION
  Report Type: 
  Country: None (occurrence: None)
  Receive Date: 20090506
  Receipt Date: 20090506
  Transmission Date: 20091009
  Serious: Yes (Hospitalization)
  Sender: FDA-Public Use
  Company Number: None

PATIENT
  Age: 39 Year
  Sex: Male
  Weight: 58.9676 kg

DRUGS (4)
  1. REYATAZ [Suspect]
     Indication: HIV INFECTION
     Dosage: 300 MG DAILY 1 CAPSULE 047
     Dates: start: 20090325
  2. BACTRIM DS [Concomitant]
  3. BICILLIN [Concomitant]
  4. TRUVADA [Concomitant]

REACTIONS (7)
  - ANOREXIA [None]
  - BILIARY DILATATION [None]
  - CHOLESTASIS [None]
  - DIARRHOEA [None]
  - EOSINOPHILIA [None]
  - PYREXIA [None]
  - RASH MACULAR [None]
